FAERS Safety Report 5820330-6 (Version None)
Quarter: 2008Q3

REPORT INFORMATION
  Report Type: 
  Country: None (occurrence: None)
  Receive Date: 20080724
  Receipt Date: 20070709
  Transmission Date: 20090109
  Serious: No
  Sender: FDA-Public Use
  Company Number: A0654614A

PATIENT
  Age: 65 Year
  Sex: Male

DRUGS (12)
  1. AVANDIA [Suspect]
     Dosage: 4MG PER DAY
     Route: 048
     Dates: end: 20070501
  2. JANUVIA [Suspect]
     Indication: DRUG USE FOR UNKNOWN INDICATION
     Route: 065
  3. METFORMIN [Concomitant]
  4. JANUVIA [Concomitant]
  5. CARTIA XT [Concomitant]
  6. HYDRODIURIL [Concomitant]
  7. POTASSIUM CHLORIDE [Concomitant]
  8. CARDURA [Concomitant]
  9. BEMECOR [Concomitant]
  10. LIPITOR [Concomitant]
  11. NIACIN [Concomitant]
  12. FOLIC ACID [Concomitant]

REACTIONS (1)
  - BLOOD HOMOCYSTEINE INCREASED [None]
